FAERS Safety Report 5331686-5 (Version None)
Quarter: 2007Q2

REPORT INFORMATION
  Report Type: 
  Country: None (occurrence: None)
  Receive Date: 20070522
  Receipt Date: 20070515
  Transmission Date: 20071010
  Serious: Yes (Death, Other)
  Sender: FDA-Public Use
  Company Number: JP-MERCK-0704USA06366

PATIENT
  Age: 74 Year
  Sex: Female

DRUGS (3)
  1. COZAAR [Suspect]
     Indication: HYPERTENSION
     Route: 048
  2. COZAAR [Suspect]
     Route: 048
  3. [THERAPY UNSPECIFIED] [Concomitant]
     Route: 065

REACTIONS (11)
  - ANAEMIA [None]
  - BLOOD CREATININE INCREASED [None]
  - BLOOD POTASSIUM INCREASED [None]
  - BLOOD UREA INCREASED [None]
  - DISSEMINATED INTRAVASCULAR COAGULATION [None]
  - GASTROINTESTINAL HAEMORRHAGE [None]
  - NAUSEA [None]
  - OEDEMA PERIPHERAL [None]
  - PRURITUS [None]
  - RENAL IMPAIRMENT [None]
  - VOMITING [None]
